FAERS Safety Report 4620494-6 (Version None)
Quarter: 2005Q1

REPORT INFORMATION
  Report Type: 
  Country: None (occurrence: None)
  Receive Date: 20050324
  Receipt Date: 20050315
  Transmission Date: 20050727
  Serious: Yes (Disabling)
  Sender: FDA-Public Use
  Company Number: 200408180

PATIENT
  Age: 46 Year
  Sex: Male
  Weight: 91 kg

DRUGS (13)
  1. BOTOX PURIFIED NEUROTOXIN COMPLEX [Suspect]
     Indication: ANAL FISSURE
     Dosage: 30 UNITS ONCE IM
     Route: 030
     Dates: start: 20040817, end: 20040817
  2. PERCOCET [Concomitant]
  3. LOPERAMIDE HCL [Concomitant]
  4. TOPICAL LIDOCAINE [Concomitant]
  5. UNSPECIFIED TOPICAL CORTICOSTEROID CREAM [Concomitant]
  6. METHYLPHENIDATE HCL [Concomitant]
  7. CLONAZEPAM [Concomitant]
  8. MYCELEX [Concomitant]
  9. BACTRIM DS [Concomitant]
  10. IBUPROFEN [Concomitant]
  11. LITHIUM [Concomitant]
  12. DIFLUCAN [Concomitant]
  13. EFFEXOR [Concomitant]

REACTIONS (12)
  - ANAL SPHINCTER ATONY [None]
  - DIARRHOEA [None]
  - EMOTIONAL DISTRESS [None]
  - FAECAL INCONTINENCE [None]
  - IMPAIRED DRIVING ABILITY [None]
  - IMPAIRED HEALING [None]
  - PAIN [None]
  - PERIPHERAL NERVE DESTRUCTION [None]
  - POST PROCEDURAL COMPLICATION [None]
  - SCAR [None]
  - SKIN IRRITATION [None]
  - TREATMENT NONCOMPLIANCE [None]
